FAERS Safety Report 6632625-7 (Version None)
Quarter: 2010Q1

REPORT INFORMATION
  Report Type: 
  Country: None (occurrence: None)
  Receive Date: 20100312
  Receipt Date: 20100226
  Transmission Date: 20100710
  Serious: Yes (Hospitalization)
  Sender: FDA-Public Use
  Company Number: GB-GENENTECH-297232

PATIENT
  Sex: Male
  Weight: 143.1 kg

DRUGS (3)
  1. XOLAIR [Suspect]
     Indication: DRUG USE FOR UNKNOWN INDICATION
     Dosage: 375 MG, UNK
     Route: 058
  2. XOLAIR [Suspect]
     Route: 030
  3. XOLAIR [Suspect]
     Dosage: UNK
     Route: 058
     Dates: start: 20100224

REACTIONS (1)
  - MEDICATION ERROR [None]
